FAERS Safety Report 13152279 (Version 1)
Quarter: 2017Q1

REPORT INFORMATION
  Report Type: Spontaneous
  Country: US (occurrence: US)
  Receive Date: 20170125
  Receipt Date: 20170125
  Transmission Date: 20170428
  Serious: No
  Sender: FDA-Public Use
  Company Number: GXBR2016US001779

PATIENT
  Age: 59 Year
  Sex: Male
  Weight: 99.77 kg

DRUGS (1)
  1. OMEPRAZOLE DELAYED RELEASE [Suspect]
     Active Substance: OMEPRAZOLE
     Indication: GASTROOESOPHAGEAL REFLUX DISEASE
     Dosage: 40 MG, UNK
     Route: 048

REACTIONS (3)
  - Pruritus [Unknown]
  - Pain in extremity [Unknown]
  - Rash [Unknown]

NARRATIVE: CASE EVENT DATE: 20160502
